FAERS Safety Report 6457739-6 (Version None)
Quarter: 2009Q4

REPORT INFORMATION
  Report Type: 
  Country: None (occurrence: None)
  Receive Date: 20091125
  Receipt Date: 20091119
  Transmission Date: 20100525
  Serious: Yes (Hospitalization)
  Sender: FDA-Public Use
  Company Number: SE-ABBOTT-09P-150-0596440-02

PATIENT
  Sex: Female
  Weight: 107 kg

DRUGS (14)
  1. HUMIRA [Suspect]
     Indication: RHEUMATOID ARTHRITIS
     Route: 058
     Dates: start: 20030326
  2. ARTROX [Concomitant]
     Indication: OSTEOARTHRITIS
     Route: 048
     Dates: start: 20080228
  3. DIMETIKON [Concomitant]
     Indication: FLATULENCE
     Route: 048
     Dates: start: 20040604
  4. LANSOPRAZOL [Concomitant]
     Indication: GASTRITIS PROPHYLAXIS
     Route: 048
     Dates: start: 20061208
  5. LANSOPRAZOL [Concomitant]
     Route: 048
     Dates: start: 20010405
  6. ATENOLOL [Concomitant]
     Indication: HYPERTENSION
     Route: 048
     Dates: start: 20070419
  7. FELODIPINE [Concomitant]
     Indication: HYPERTENSION
     Route: 048
     Dates: start: 20070419
  8. FOLIC ACID [Concomitant]
     Indication: VITAMIN SUPPLEMENTATION
     Route: 048
     Dates: start: 20010405
  9. PARACETAMOL [Concomitant]
     Indication: PAIN
     Route: 048
     Dates: start: 20010405
  10. KETOPROFEN [Concomitant]
     Indication: PAIN
     Route: 048
     Dates: start: 20030109
  11. KETOPROFEN [Concomitant]
     Indication: MUSCULOSKELETAL STIFFNESS
  12. METOTREXATE [Concomitant]
     Indication: RHEUMATOID ARTHRITIS
     Route: 048
     Dates: start: 20030326
  13. METOTREXATE [Concomitant]
     Dosage: 2.5 MG X 4 = 10  MG
     Route: 048
     Dates: start: 20050601
  14. ACETYLCYSTEINE [Concomitant]
     Indication: COUGH
     Route: 048
     Dates: start: 20020801

REACTIONS (1)
  - ABDOMINAL PAIN [None]
